FAERS Safety Report 11683827 (Version 2)
Quarter: 2017Q2

REPORT INFORMATION
  Report Type: Report from Study
  Country: JP (occurrence: JP)
  Receive Date: 20151029
  Receipt Date: 20170418
  Transmission Date: 20170829
  Serious: Yes (Death, Life-Threatening, Hospitalization, Other)
  Sender: FDA-Public Use
  Company Number: PHHY2010JP101391

PATIENT
  Age: 53 Year
  Sex: Female
  Weight: 39 kg

DRUGS (10)
  1. TYKERB [Suspect]
     Active Substance: LAPATINIB DITOSYLATE
     Indication: BREAST CANCER
     Dosage: 1250 MG, QD
     Route: 048
     Dates: start: 20100216, end: 20100308
  2. TYKERB [Suspect]
     Active Substance: LAPATINIB DITOSYLATE
     Dosage: 1000 MG, QD
     Route: 048
     Dates: start: 20100309, end: 20100405
  3. MUCODYNE [Concomitant]
     Active Substance: CARBOCYSTEINE
     Indication: COUGH
     Dosage: UNK
     Route: 048
     Dates: start: 20091226, end: 20100408
  4. ALDACTONE A [Concomitant]
     Active Substance: SPIRONOLACTONE
     Indication: ASCITES
     Dosage: UNK
     Route: 048
     Dates: start: 20100102, end: 20100408
  5. MEDICON//DEXTROMETHORPHAN HYDROBROMIDE [Concomitant]
     Indication: COUGH
     Route: 048
     Dates: start: 20091226, end: 20100408
  6. LOPERAMIDE [Concomitant]
     Active Substance: LOPERAMIDE
     Indication: PRODUCT USED FOR UNKNOWN INDICATION
     Dosage: UNK
     Route: 065
  7. BIO-THREE [Concomitant]
     Active Substance: HERBALS
     Indication: DIARRHOEA
     Dosage: UNK
     Route: 048
     Dates: start: 20091227, end: 20100408
  8. XELODA [Concomitant]
     Active Substance: CAPECITABINE
     Dosage: 1800 MG, UNK
     Route: 048
     Dates: start: 20100316, end: 20100329
  9. FUROSEMIDE. [Concomitant]
     Active Substance: FUROSEMIDE
     Indication: ASCITES
     Dosage: UNK
     Route: 048
     Dates: start: 20100104, end: 20100408
  10. XELODA [Concomitant]
     Active Substance: CAPECITABINE
     Indication: PRODUCT USED FOR UNKNOWN INDICATION
     Dosage: 2400 MG, QD
     Route: 048
     Dates: start: 20100216, end: 20100301

REACTIONS (17)
  - Breast cancer [Fatal]
  - Palmar-plantar erythrodysaesthesia syndrome [Not Recovered/Not Resolved]
  - Myocardial ischaemia [Unknown]
  - Cardio-respiratory arrest [Fatal]
  - Altered state of consciousness [Unknown]
  - ECG signs of myocardial ischaemia [Fatal]
  - Stomatitis [Recovering/Resolving]
  - Vomiting [Recovering/Resolving]
  - Hepatic function abnormal [Unknown]
  - Ascites [Unknown]
  - Jaundice [Unknown]
  - Malignant ascites [Unknown]
  - Vulvar erosion [Recovering/Resolving]
  - Disease progression [Fatal]
  - Diarrhoea [Recovering/Resolving]
  - Electrocardiogram abnormal [Unknown]
  - Decreased appetite [Unknown]

NARRATIVE: CASE EVENT DATE: 20100216
